FAERS Safety Report 25962869 (Version 1)
Quarter: 2025Q4

REPORT INFORMATION
  Report Type: Spontaneous
  Country: US (occurrence: None)
  Receive Date: 20251025
  Receipt Date: 20251025
  Transmission Date: 20260117
  Serious: No
  Sender: FDA-CTU
  Company Number: None

PATIENT
  Age: 0 Year
  Sex: Male
  Weight: 3.15 kg

DRUGS (1)
  1. VITAMIN K [Suspect]
     Active Substance: PHYTONADIONE

REACTIONS (5)
  - Incorrect route of product administration [None]
  - Product advertising issue [None]
  - Drug monitoring procedure not performed [None]
  - Product communication issue [None]
  - Wrong technique in product usage process [None]

NARRATIVE: CASE EVENT DATE: 20250918
